FAERS Safety Report 14930790 (Version 1)
Quarter: 2018Q2

REPORT INFORMATION
  Report Type: Spontaneous
  Country: FR (occurrence: FR)
  Receive Date: 20180524
  Receipt Date: 20180524
  Transmission Date: 20180711
  Serious: Yes (Other)
  Sender: FDA-Public Use
  Company Number: FR-MERCK KGAA-2048351

PATIENT
  Age: 61 Year
  Sex: Female

DRUGS (1)
  1. NOVOTHYROX [Suspect]
     Active Substance: LEVOTHYROXINE SODIUM
     Indication: PRODUCT USED FOR UNKNOWN INDICATION
     Dates: end: 20170821

REACTIONS (40)
  - Amnesia [None]
  - Headache [Recovered/Resolved]
  - Balance disorder [None]
  - Anger [None]
  - Nausea [Recovered/Resolved]
  - Joint swelling [None]
  - Paraesthesia [None]
  - Constipation [None]
  - Arrhythmia [None]
  - Cough [None]
  - Impaired work ability [None]
  - Dizziness [Recovered/Resolved]
  - Malaise [None]
  - Abdominal pain [None]
  - Feeling drunk [None]
  - Psychiatric symptom [None]
  - Asthenia [Recovered/Resolved]
  - Mood swings [None]
  - Pain in extremity [None]
  - Fatigue [None]
  - Dyspepsia [None]
  - Disturbance in attention [None]
  - Eye allergy [None]
  - Arthralgia [None]
  - Hepatic pain [None]
  - Anxiety [None]
  - Aphasia [None]
  - Pain in jaw [None]
  - Impaired driving ability [None]
  - Weight increased [None]
  - Multiple allergies [None]
  - Chest pain [None]
  - Personal relationship issue [None]
  - Back pain [None]
  - Irritability [None]
  - Loss of libido [None]
  - Social avoidant behaviour [None]
  - Alopecia [Recovered/Resolved]
  - Diarrhoea [None]
  - Insomnia [None]

NARRATIVE: CASE EVENT DATE: 201705
